FAERS Safety Report 9880285 (Version 2)
Quarter: 2014Q1

REPORT INFORMATION
  Report Type: Report from Study
  Country: IL (occurrence: IL)
  Receive Date: 20140207
  Receipt Date: 20140224
  Transmission Date: 20141002
  Serious: Yes (Death)
  Sender: FDA-Public Use
  Company Number: IL-ROCHE-1346196

PATIENT
  Age: 65 Year
  Sex: Male
  Weight: 107 kg

DRUGS (1)
  1. AVASTIN [Suspect]
     Indication: COLON CANCER METASTATIC
     Route: 042
     Dates: start: 20131218, end: 20140205

REACTIONS (1)
  - Disease progression [Fatal]
